FAERS Safety Report 4550390-4 (Version None)
Quarter: 2005Q1

REPORT INFORMATION
  Report Type: 
  Country: None (occurrence: None)
  Receive Date: 20050110
  Receipt Date: 20041230
  Transmission Date: 20050727
  Serious: Yes (Hospitalization)
  Sender: FDA-Public Use
  Company Number: ZONI002085

PATIENT
  Age: 27 Year
  Sex: Female

DRUGS (5)
  1. ZONEGRAN [Suspect]
     Indication: EPILEPSY
     Dosage: 200 MG, 1 IN 1 D, ORAL
     Route: 048
     Dates: end: 20040101
  2. DEPAKOTE [Suspect]
     Indication: EPILEPSY
     Dosage: 500 MG, ORAL
     Route: 048
     Dates: end: 20040101
  3. NEURONTIN [Suspect]
     Indication: EPILEPSY
     Dosage: 1200 MG, ORAL
     Route: 048
     Dates: start: 20041117
  4. KEPPRA [Suspect]
     Indication: EPILEPSY
     Dosage: SEE IMAGE, ORAL
     Route: 048
     Dates: end: 20040101
  5. KEPPRA [Suspect]
     Indication: EPILEPSY
     Dosage: SEE IMAGE, ORAL
     Route: 048
     Dates: start: 20040101

REACTIONS (3)
  - ABORTION SPONTANEOUS [None]
  - DRUG EXPOSURE DURING PREGNANCY [None]
  - VOMITING [None]
